FAERS Safety Report 4284870-6 (Version None)
Quarter: 2004Q1

REPORT INFORMATION
  Report Type: 
  Country: None (occurrence: None)
  Receive Date: 20040204
  Receipt Date: 20040122
  Transmission Date: 20041129
  Serious: Yes (Hospitalization)
  Sender: FDA-Public Use
  Company Number: PHBS2004JP01330

PATIENT
  Age: 74 Year
  Sex: Female

DRUGS (7)
  1. LOCHOL [Suspect]
     Indication: HYPERCHOLESTEROLAEMIA
     Dosage: 20 MG/DAY
     Route: 048
     Dates: start: 20031101, end: 20040120
  2. BERIZYM [Suspect]
     Route: 048
     Dates: end: 20040120
  3. ALINAMIN [Suspect]
     Route: 048
     Dates: end: 20040120
  4. BIOFERMIN [Suspect]
     Route: 048
     Dates: end: 20040120
  5. CLOTIAZEPAM [Suspect]
     Route: 048
     Dates: end: 20040120
  6. ELIETEN [Suspect]
     Route: 048
     Dates: end: 20040120
  7. SENNOSIDE A [Suspect]
     Route: 048
     Dates: end: 20040120

REACTIONS (3)
  - ANAEMIA [None]
  - PLATELET COUNT DECREASED [None]
  - RED BLOOD CELL COUNT DECREASED [None]
